FAERS Safety Report 17599809 (Version 2)
Quarter: 2020Q2

REPORT INFORMATION
  Report Type: Spontaneous
  Country: UA (occurrence: UA)
  Receive Date: 20200330
  Receipt Date: 20200427
  Transmission Date: 20200713
  Serious: Yes (Hospitalization)
  Sender: FDA-Public Use
  Company Number: NVSC2020UA077231

PATIENT
  Age: 44 Year
  Sex: Male
  Weight: 65 kg

DRUGS (7)
  1. MOXONIDINE [Concomitant]
     Active Substance: MOXONIDINE
     Indication: HYPERTENSION
     Dosage: 0.4 MG, QD
     Route: 065
  2. DOXAZOSIN [Concomitant]
     Active Substance: DOXAZOSIN MESYLATE
     Indication: PRODUCT USED FOR UNKNOWN INDICATION
     Route: 065
  3. AMLODIPINE [Concomitant]
     Active Substance: AMLODIPINE BESYLATE
     Indication: PRODUCT USED FOR UNKNOWN INDICATION
     Dosage: 5 MG, QD
     Route: 065
  4. BISOPROLOL [Suspect]
     Active Substance: BISOPROLOL
     Indication: HYPERTENSION
     Dosage: 10 MG, QD
     Route: 065
  5. INDAPAMIDE,PERINDOPRIL [Suspect]
     Active Substance: INDAPAMIDE\PERINDOPRIL
     Dosage: 5/1.25
     Route: 065
  6. BISOPROLOL [Suspect]
     Active Substance: BISOPROLOL
     Dosage: 1.25 UNK
     Route: 065
  7. INDAPAMIDE,PERINDOPRIL [Suspect]
     Active Substance: INDAPAMIDE\PERINDOPRIL
     Indication: HYPERTENSION
     Dosage: 10/2.5 MG, QD
     Route: 065

REACTIONS (5)
  - Weight decreased [Unknown]
  - Palpitations [Recovering/Resolving]
  - Hypertension [Recovering/Resolving]
  - Headache [Recovering/Resolving]
  - Drug ineffective [Unknown]
